FAERS Safety Report 9248819 (Version 2)
Quarter: 2013Q2

REPORT INFORMATION
  Report Type: Report from Study
  Country: FI (occurrence: FI)
  Receive Date: 20130423
  Receipt Date: 20130502
  Transmission Date: 20140414
  Serious: Yes (Death, Hospitalization)
  Sender: FDA-Public Use
  Company Number: FI-ROCHE-GNE105218

PATIENT
  Sex: Male

DRUGS (2)
  1. ALTEPLASE [Suspect]
     Indication: ACUTE MYOCARDIAL INFARCTION
     Dosage: BOLUS 15 MG+0.75 MG/KG DURING 30 MIN ({=50 MG)+0.5 MG/KG NEXT 60 MIN
     Route: 040
  2. HEPARIN [Concomitant]
     Indication: ACUTE MYOCARDIAL INFARCTION
     Dosage: 5000 UNITS BOLUS FOLLOWED BY 1000 UNITS/H INFUSION
     Route: 040

REACTIONS (4)
  - Myocardial infarction [Fatal]
  - Haemorrhage [Unknown]
  - Haematoma [Unknown]
  - Puncture site haemorrhage [Unknown]
